FAERS Safety Report 25597777 (Version 1)
Quarter: 2025Q3

REPORT INFORMATION
  Report Type: Spontaneous
  Country: US (occurrence: US)
  Receive Date: 20250723
  Receipt Date: 20250723
  Transmission Date: 20251020
  Serious: Yes (Hospitalization)
  Sender: ROCHE
  Company Number: US-ROCHE-10000336984

PATIENT
  Sex: Female

DRUGS (3)
  1. ACTEMRA [Suspect]
     Active Substance: TOCILIZUMAB
     Indication: Giant cell arteritis
     Dosage: PER HCP, AS OF TODAY, 11-JUL-2025, NEXT DOSE ON 14-JUL-2025 WILL BEGIN ACTEMRA ONCE EVERY WEEK
     Route: 058
     Dates: start: 2025
  2. ACTEMRA [Suspect]
     Active Substance: TOCILIZUMAB
     Dosage: PER HCP, AS OF TODAY, 11-JUL-2025, NEXT DOSE ON 14-JUL-2025 WILL BEGIN ACTEMRA ONCE EVERY WEEK
     Route: 058
     Dates: end: 2025
  3. PREDNISONE [Concomitant]
     Active Substance: PREDNISONE
     Indication: Giant cell arteritis
     Dosage: TO START ON 12-JUL-2025. WILL TAPER DOWN PER PLAN.
     Dates: start: 202507

REACTIONS (11)
  - Product dose omission issue [Unknown]
  - Fall [Unknown]
  - Head injury [Unknown]
  - Limb injury [Recovering/Resolving]
  - Contusion [Recovering/Resolving]
  - Headache [Unknown]
  - Wrong technique in device usage process [Unknown]
  - Needle issue [Unknown]
  - Haemorrhage [Unknown]
  - Loss of consciousness [Unknown]
  - Skin abrasion [Unknown]

NARRATIVE: CASE EVENT DATE: 20250701
